FAERS Safety Report 8974539 (Version 3)
Quarter: 2013Q1

REPORT INFORMATION
  Report Type: Spontaneous
  Country: JP (occurrence: JP)
  Receive Date: 20121220
  Receipt Date: 20130117
  Transmission Date: 20140127
  Serious: Yes (Other)
  Sender: FDA-Public Use
  Company Number: JP-009507513-1212JPN006021

PATIENT
  Age: 76 Year
  Sex: Male

DRUGS (2)
  1. GLACTIV [Suspect]
     Indication: TYPE 2 DIABETES MELLITUS
     Dosage: UNK
     Route: 048
  2. GLIMEPIRIDE [Concomitant]
     Indication: TYPE 2 DIABETES MELLITUS

REACTIONS (4)
  - Aortic thrombosis [Recovered/Resolved]
  - Aortic thrombosis [Recovered/Resolved]
  - Embolism arterial [Recovered/Resolved]
  - Colitis ischaemic [Not Recovered/Not Resolved]
